FAERS Safety Report 4727986-X (Version None)
Quarter: 2005Q3

REPORT INFORMATION
  Report Type: 
  Country: None (occurrence: None)
  Receive Date: 20050725
  Receipt Date: 20050330
  Transmission Date: 20060218
  Serious: No
  Sender: FDA-Public Use
  Company Number: USA050394497

PATIENT
  Age: 43 Year
  Sex: Female

DRUGS (5)
  1. STRATTERA [Suspect]
     Dosage: 40 MG DAY
  2. FLUOXETINE [Concomitant]
  3. LANTUS [Concomitant]
  4. ORAL DIABETES MEDS [Concomitant]
  5. AVANDIA (ROSIGI8LTAZONE MALEATE) [Concomitant]

REACTIONS (1)
  - FEELING ABNORMAL [None]
